FAERS Safety Report 7214846-8 (Version None)
Quarter: 2011Q1

REPORT INFORMATION
  Report Type: 
  Country: None (occurrence: None)
  Receive Date: 20110107
  Receipt Date: 20100405
  Transmission Date: 20110831
  Serious: No
  Sender: FDA-Public Use
  Company Number: A0853485A

PATIENT
  Sex: Female

DRUGS (5)
  1. LOVASTATIN [Concomitant]
  2. ALPRAZOLAM [Concomitant]
  3. ASPIRIN [Concomitant]
  4. LOVAZA [Suspect]
     Dosage: 2CAP TWICE PER DAY
     Route: 048
  5. LUTEIN [Concomitant]

REACTIONS (1)
  - LOW DENSITY LIPOPROTEIN INCREASED [None]
